FAERS Safety Report 14468946 (Version 1)
Quarter: 2018Q1

REPORT INFORMATION
  Report Type: Spontaneous
  Country: US (occurrence: US)
  Receive Date: 20180131
  Receipt Date: 20180131
  Transmission Date: 20180509
  Serious: No
  Sender: FDA-Public Use
  Company Number: US-AKRON, INC.-2041158

PATIENT
  Sex: Male

DRUGS (1)
  1. CLOBETASOL PROPIONATE TOPICAL SOLUTION, USP, 0.05% [Suspect]
     Active Substance: CLOBETASOL PROPIONATE
     Indication: PSORIASIS
     Route: 061

REACTIONS (2)
  - Nightmare [Recovering/Resolving]
  - Intentional product misuse [Unknown]
